FAERS Safety Report 9515111 (Version 1)
Quarter: 2013Q3

REPORT INFORMATION
  Report Type: Spontaneous
  Country: FI (occurrence: FI)
  Receive Date: 20130911
  Receipt Date: 20130911
  Transmission Date: 20140515
  Serious: Yes (Hospitalization)
  Sender: FDA-Public Use
  Company Number: FI-BAYER-2013-108958

PATIENT
  Sex: Female

DRUGS (1)
  1. YASMIN [Suspect]
     Dosage: UNK
     Route: 048
     Dates: start: 2012, end: 201212

REACTIONS (7)
  - Migraine [Not Recovered/Not Resolved]
  - Migraine with aura [Recovered/Resolved]
  - Hypoaesthesia [Recovered/Resolved]
  - Cardiovascular disorder [Recovered/Resolved]
  - Monoparesis [None]
  - Hypoaesthesia [None]
  - Hypoaesthesia [None]
